FAERS Safety Report 19084350 (Version 1)
Quarter: 2021Q2

REPORT INFORMATION
  Report Type: Spontaneous
  Country: JP (occurrence: JP)
  Receive Date: 20210401
  Receipt Date: 20210401
  Transmission Date: 20210717
  Serious: Yes (Hospitalization, Other)
  Sender: FDA-Public Use
  Company Number: JP-GILEAD-2021-0518670

PATIENT
  Age: 80 Year
  Sex: Female
  Weight: 57 kg

DRUGS (74)
  1. NICORANDIL [Concomitant]
     Active Substance: NICORANDIL
     Dosage: 5 MG, BID
     Route: 048
     Dates: start: 20210201, end: 20210214
  2. NEXIUM [Concomitant]
     Active Substance: ESOMEPRAZOLE MAGNESIUM
     Dosage: 1 DOSAGE FORM, QD
     Route: 048
     Dates: start: 20210216, end: 20210216
  3. CONIEL [Concomitant]
     Active Substance: BENIDIPINE HYDROCHLORIDE
     Dosage: 2 MG, QD
     Route: 048
     Dates: start: 20210124, end: 20210214
  4. CONIEL [Concomitant]
     Active Substance: BENIDIPINE HYDROCHLORIDE
     Dosage: 4 MG, QD
     Route: 048
     Dates: start: 20210216, end: 20210216
  5. CRESTOR [Concomitant]
     Active Substance: ROSUVASTATIN CALCIUM
     Dosage: 2.5 MG, QD
     Route: 048
     Dates: start: 20210201, end: 20210204
  6. AVIGAN [Concomitant]
     Active Substance: FAVIPIRAVIR
     Dosage: 1800 MG, BID
     Route: 048
     Dates: start: 20210304, end: 20210304
  7. DECADRON [Concomitant]
     Active Substance: DEXAMETHASONE
     Dosage: 3 MG, BID
     Route: 048
     Dates: start: 20210127, end: 20210128
  8. SODIUM CHLORIDE. [Concomitant]
     Active Substance: SODIUM CHLORIDE
     Dosage: 100 ML
     Route: 065
     Dates: start: 20210128, end: 20210309
  9. SODIUM CHLORIDE. [Concomitant]
     Active Substance: SODIUM CHLORIDE
     Dosage: 20 ML
     Route: 065
     Dates: start: 20210130, end: 20210130
  10. SODIUM CHLORIDE. [Concomitant]
     Active Substance: SODIUM CHLORIDE
     Dosage: 40 ML
     Route: 065
     Dates: start: 20210130, end: 20210131
  11. ACTEMRA [Concomitant]
     Active Substance: TOCILIZUMAB
     Dosage: 324 MG
     Route: 065
     Dates: start: 20210128, end: 20210128
  12. DORMICUM [MIDAZOLAM] [Concomitant]
     Active Substance: MIDAZOLAM HYDROCHLORIDE
     Dosage: 50 MG
     Route: 065
     Dates: start: 20210219, end: 20210309
  13. FENTANYL [FENTANYL CITRATE] [Concomitant]
     Active Substance: FENTANYL CITRATE
     Dosage: 0.4 MG
     Route: 065
     Dates: start: 20210219, end: 20210309
  14. RECOMODULIN [Concomitant]
     Active Substance: THROMBOMODULIN ALFA
     Dosage: 12800 UNIT
     Route: 065
     Dates: start: 20210201, end: 20210205
  15. DEXMEDETOMIDINE [DEXMEDETOMIDINE HYDROCHLORIDE] [Concomitant]
     Dosage: 200 UG
     Route: 065
     Dates: start: 20210203, end: 20210204
  16. MUCODYNE [Concomitant]
     Active Substance: CARBOCYSTEINE
     Dosage: 500 MG, TID
     Route: 048
     Dates: start: 20210201, end: 20210204
  17. ATOLANT [Concomitant]
     Dosage: UNK UNK, QD
     Dates: start: 20210205
  18. SODIUM CHLORIDE. [Concomitant]
     Active Substance: SODIUM CHLORIDE
     Dosage: 500 ML
     Route: 065
     Dates: start: 20210130, end: 20210130
  19. DORMICUM [MIDAZOLAM] [Concomitant]
     Active Substance: MIDAZOLAM HYDROCHLORIDE
     Dosage: 10 MG
     Route: 065
     Dates: start: 20210130, end: 20210130
  20. DORMICUM [MIDAZOLAM] [Concomitant]
     Active Substance: MIDAZOLAM HYDROCHLORIDE
     Dosage: 100 MG
     Route: 065
     Dates: start: 20210131, end: 20210202
  21. DORMICUM [MIDAZOLAM] [Concomitant]
     Active Substance: MIDAZOLAM HYDROCHLORIDE
     Dosage: 10 MG
     Route: 065
     Dates: start: 20210217, end: 20210217
  22. BFLUID [Concomitant]
     Active Substance: AMINO ACIDS\DEXTROSE\ELECTROLYTES NOS\VITAMINS
     Dosage: 500 ML
     Route: 065
     Dates: start: 20210130, end: 20210217
  23. BISOLVON [Concomitant]
     Active Substance: BROMHEXINE HYDROCHLORIDE
     Dosage: 4 MG
     Route: 065
     Dates: start: 20210206, end: 20210207
  24. VEKLURY [Suspect]
     Active Substance: REMDESIVIR
     Dosage: 100 MG, QD
     Route: 041
     Dates: start: 20210203, end: 20210206
  25. FRANDOL S [Concomitant]
     Active Substance: ISOSORBIDE DINITRATE
     Dosage: UNK UNK, QD
     Dates: start: 20210129
  26. ALVESCO [Concomitant]
     Active Substance: CICLESONIDE
     Dosage: UNK UNK, TID
     Route: 055
     Dates: start: 20210125
  27. SODIUM CHLORIDE. [Concomitant]
     Active Substance: SODIUM CHLORIDE
     Dosage: 20 ML
     Route: 065
     Dates: start: 20210206, end: 20210309
  28. SODIUM CHLORIDE. [Concomitant]
     Active Substance: SODIUM CHLORIDE
     Dosage: 44 ML
     Route: 065
     Dates: start: 20210217, end: 20210219
  29. SOLU?MEDROL [Concomitant]
     Active Substance: METHYLPREDNISOLONE SODIUM SUCCINATE
     Dosage: 1000 MG
     Route: 065
     Dates: start: 20210206, end: 20210207
  30. BAYASPIRIN [Concomitant]
     Active Substance: ASPIRIN
     Dosage: 1 DOSAGE FORM, QD
     Route: 048
     Dates: start: 20210201, end: 20210214
  31. BAYASPIRIN [Concomitant]
     Active Substance: ASPIRIN
     Dosage: 1 DOSAGE FORM, QD
     Route: 048
     Dates: start: 20210216, end: 20210216
  32. NEXIUM [Concomitant]
     Active Substance: ESOMEPRAZOLE MAGNESIUM
     Dosage: 1 DOSAGE FORM, QD
     Route: 048
     Dates: start: 20210201, end: 20210214
  33. FRANDOL S [Concomitant]
     Active Substance: ISOSORBIDE DINITRATE
     Dosage: UNK UNK, QD
     Dates: start: 20210128, end: 20210128
  34. DECADRON [Concomitant]
     Active Substance: DEXAMETHASONE
     Dosage: 3 MG, BID
     Route: 048
     Dates: start: 20210206, end: 20210208
  35. SODIUM CHLORIDE. [Concomitant]
     Active Substance: SODIUM CHLORIDE
     Dosage: 40 ML
     Route: 065
     Dates: start: 20210219, end: 20210309
  36. SODIUM CHLORIDE. [Concomitant]
     Active Substance: SODIUM CHLORIDE
     Dosage: 38 ML
     Route: 065
     Dates: start: 20210219, end: 20210309
  37. SOLU?MEDROL [Concomitant]
     Active Substance: METHYLPREDNISOLONE SODIUM SUCCINATE
     Dosage: 125 MG
     Route: 065
     Dates: start: 20210131, end: 20210202
  38. NICORANDIL [Concomitant]
     Active Substance: NICORANDIL
     Dosage: 5 MG, BID
     Route: 048
     Dates: start: 20210124, end: 20210130
  39. CONIEL [Concomitant]
     Active Substance: BENIDIPINE HYDROCHLORIDE
     Dosage: 4 MG, QD
     Route: 048
     Dates: start: 20210124, end: 20210129
  40. LOXONIN [Concomitant]
     Active Substance: LOXOPROFEN SODIUM
     Dosage: 1 DOSAGE FORM, PRN
     Route: 065
     Dates: start: 20210125
  41. SODIUM CHLORIDE. [Concomitant]
     Active Substance: SODIUM CHLORIDE
     Dosage: 30 ML
     Route: 065
     Dates: start: 20210131, end: 20210202
  42. SODIUM CHLORIDE. [Concomitant]
     Active Substance: SODIUM CHLORIDE
     Dosage: 2 ML
     Route: 065
     Dates: start: 20210201, end: 20210205
  43. SODIUM CHLORIDE. [Concomitant]
     Active Substance: SODIUM CHLORIDE
     Dosage: 60 ML
     Route: 065
     Dates: start: 20210202, end: 20210202
  44. SOLU?MEDROL [Concomitant]
     Active Substance: METHYLPREDNISOLONE SODIUM SUCCINATE
     Dosage: 125 MG
     Route: 065
     Dates: start: 20210223, end: 20210224
  45. ROCEPHIN [Concomitant]
     Active Substance: CEFTRIAXONE SODIUM
     Dosage: 2 G
     Route: 065
     Dates: start: 20210128, end: 20210205
  46. ACTEMRA [Concomitant]
     Active Substance: TOCILIZUMAB
     Dosage: 2 DOSAGE FORM
     Route: 065
     Dates: start: 20210218, end: 20210218
  47. MUSCULAX [Concomitant]
     Active Substance: VECURONIUM BROMIDE
     Dosage: 10 MG
     Route: 065
     Dates: start: 20210130, end: 20210130
  48. FENTANYL [FENTANYL CITRATE] [Concomitant]
     Active Substance: FENTANYL CITRATE
     Dosage: 0.2 MG
     Route: 065
     Dates: start: 20210217, end: 20210219
  49. BAYASPIRIN [Concomitant]
     Active Substance: ASPIRIN
     Dosage: 1 DOSAGE FORM, QD
     Route: 048
     Dates: start: 20210124, end: 20210130
  50. SODIUM CHLORIDE. [Concomitant]
     Active Substance: SODIUM CHLORIDE
     Dosage: 80 ML
     Route: 065
     Dates: start: 20210203, end: 20210206
  51. SOLU?MEDROL [Concomitant]
     Active Substance: METHYLPREDNISOLONE SODIUM SUCCINATE
     Dosage: 1000 MG
     Route: 065
     Dates: start: 20210128, end: 20210130
  52. SOLU?MEDROL [Concomitant]
     Active Substance: METHYLPREDNISOLONE SODIUM SUCCINATE
     Dosage: 62.5 MG
     Route: 065
     Dates: start: 20210225, end: 20210309
  53. DORMICUM [MIDAZOLAM] [Concomitant]
     Active Substance: MIDAZOLAM HYDROCHLORIDE
     Dosage: 50 MG
     Route: 065
     Dates: start: 20210130, end: 20210131
  54. FENTANYL [FENTANYL CITRATE] [Concomitant]
     Active Substance: FENTANYL CITRATE
     Dosage: 0.3 MG
     Route: 065
     Dates: start: 20210201, end: 20210204
  55. NEXIUM [Concomitant]
     Active Substance: ESOMEPRAZOLE MAGNESIUM
     Dosage: 1 DOSAGE FORM, QD
     Route: 048
     Dates: start: 20210124, end: 20210130
  56. CONIEL [Concomitant]
     Active Substance: BENIDIPINE HYDROCHLORIDE
     Dosage: 4 MG, QD
     Route: 048
     Dates: start: 20210201, end: 20210214
  57. AVIGAN [Concomitant]
     Active Substance: FAVIPIRAVIR
     Dosage: 1800 MG, BID
     Route: 048
     Dates: start: 20210125, end: 20210125
  58. AVIGAN [Concomitant]
     Active Substance: FAVIPIRAVIR
     Dosage: 800 MG, BID
     Route: 048
     Dates: start: 20210306, end: 20210309
  59. MUCODYNE [Concomitant]
     Active Substance: CARBOCYSTEINE
     Dosage: 500 MG, TID
     Route: 048
     Dates: start: 20210222, end: 20210309
  60. FOIPAN [Concomitant]
     Active Substance: CAMOSTAT MESYLATE
     Dosage: 200 MG, TID
     Route: 048
     Dates: start: 20210205, end: 20210211
  61. CRAVIT [Concomitant]
     Active Substance: LEVOFLOXACIN
     Dosage: 500 MG, QD
     Route: 048
     Dates: start: 20210206, end: 20210214
  62. CRAVIT [Concomitant]
     Active Substance: LEVOFLOXACIN
     Dosage: 500 MG, QD
     Route: 048
     Dates: start: 20210216, end: 20210216
  63. SOLU?MEDROL [Concomitant]
     Active Substance: METHYLPREDNISOLONE SODIUM SUCCINATE
     Dosage: 1000 MG
     Route: 065
     Dates: start: 20210219, end: 20210221
  64. SOLU?MEDROL [Concomitant]
     Active Substance: METHYLPREDNISOLONE SODIUM SUCCINATE
     Dosage: 62.5 MG
     Route: 065
     Dates: start: 20210216, end: 20210218
  65. WATER FOR INJECTION [Concomitant]
     Active Substance: WATER
     Dosage: 19 ML
     Route: 065
     Dates: start: 20210203, end: 20210206
  66. DEXMEDETOMIDINE [DEXMEDETOMIDINE HYDROCHLORIDE] [Concomitant]
     Dosage: 200 UG
     Route: 065
     Dates: start: 20210215, end: 20210218
  67. VEKLURY [Suspect]
     Active Substance: REMDESIVIR
     Indication: COVID-19
     Dosage: 200 MG, QD
     Route: 041
     Dates: start: 20210202, end: 20210202
  68. CRESTOR [Concomitant]
     Active Substance: ROSUVASTATIN CALCIUM
     Dosage: 2.5 MG, QD
     Route: 048
     Dates: start: 20210124, end: 20210130
  69. AVIGAN [Concomitant]
     Active Substance: FAVIPIRAVIR
     Dosage: 800 MG, BID
     Route: 048
     Dates: start: 20210126, end: 20210203
  70. MUCODYNE [Concomitant]
     Active Substance: CARBOCYSTEINE
     Dosage: 500 MG, TID
     Route: 048
     Dates: start: 20210205, end: 20210213
  71. SOLU?MEDROL [Concomitant]
     Active Substance: METHYLPREDNISOLONE SODIUM SUCCINATE
     Dosage: 62.5 MG
     Route: 065
     Dates: start: 20210203, end: 20210205
  72. ROCEPHIN [Concomitant]
     Active Substance: CEFTRIAXONE SODIUM
     Dosage: 2 G
     Route: 065
     Dates: start: 20210217, end: 20210218
  73. MUSCULAX [Concomitant]
     Active Substance: VECURONIUM BROMIDE
     Dosage: 10 MG
     Route: 065
     Dates: start: 20210217, end: 20210217
  74. WATER FOR INJECTION [Concomitant]
     Active Substance: WATER
     Dosage: 38 ML
     Route: 065
     Dates: start: 20210202, end: 20210202

REACTIONS (1)
  - Disease progression [Not Recovered/Not Resolved]

NARRATIVE: CASE EVENT DATE: 20210206
